FAERS Safety Report 23759383 (Version 1)
Quarter: 2024Q2

REPORT INFORMATION
  Report Type: Spontaneous
  Country: US (occurrence: None)
  Receive Date: 20240418
  Receipt Date: 20240418
  Transmission Date: 20240716
  Serious: No
  Sender: FDA-Public Use
  Company Number: US-ROCHE-3510170

PATIENT
  Sex: Female

DRUGS (1)
  1. ESBRIET [Suspect]
     Active Substance: PIRFENIDONE
     Indication: Interstitial lung disease
     Route: 048

REACTIONS (8)
  - Product dose omission in error [Unknown]
  - Off label use [Unknown]
  - Stress [Unknown]
  - Fatigue [Unknown]
  - Abdominal pain [Unknown]
  - Dizziness [Unknown]
  - Blood pressure increased [Unknown]
  - Bronchitis [Unknown]
